FAERS Safety Report 8451114-0 (Version None)
Quarter: 2012Q2

REPORT INFORMATION
  Report Type: 
  Country: None (occurrence: None)
  Receive Date: 20120620
  Receipt Date: 20120611
  Transmission Date: 20120825
  Serious: Yes (Other)
  Sender: FDA-Public Use
  Company Number: IT-JNJFOC-20120607236

PATIENT
  Sex: Female

DRUGS (6)
  1. DOXORUBICIN HCL [Suspect]
     Indication: OVARIAN CANCER RECURRENT
     Dosage: EVERY 3 WEEKS; ON DAY FOR MORE THAN 60 MINUTES
     Route: 042
  2. PYRIDOXINE HCL [Concomitant]
     Indication: PALLIATIVE CARE
     Route: 048
  3. LOPERAMIDE [Concomitant]
     Indication: PALLIATIVE CARE
     Route: 065
  4. VELCADE [Suspect]
     Indication: OVARIAN CANCER RECURRENT
     Dosage: EVERY 3 WEEKS ON DAYS 1, 4, 8 AND 11 AS 3-5 SECOND BOLUS
     Route: 040
  5. INDOMETHACIN [Concomitant]
     Indication: PALLIATIVE CARE
     Route: 065
  6. DEXAMETHASONE [Concomitant]
     Indication: PALLIATIVE CARE
     Route: 042

REACTIONS (2)
  - INFECTION [None]
  - INFESTATION [None]
